FAERS Safety Report 9360190 (Version 1)
Quarter: 2013Q2

REPORT INFORMATION
  Report Type: Spontaneous
  Country: US (occurrence: None)
  Receive Date: 20130620
  Receipt Date: 20130620
  Transmission Date: 20140414
  Serious: No
  Sender: FDA-Public Use
  Company Number: None

PATIENT
  Age: 66 Year
  Sex: Female
  Weight: 65.77 kg

DRUGS (9)
  1. OMEPRAZOLE [Suspect]
     Indication: GASTROOESOPHAGEAL REFLUX DISEASE
     Dosage: 20MG?2 PILLS A DAY?MORNING ONE?NIGHT 1?BY MOUTH
     Route: 048
     Dates: start: 2006, end: 20130516
  2. IRON SUPPLEMENT [Concomitant]
  3. ALLERCLEAR [Concomitant]
  4. LOSARTAN [Concomitant]
  5. MULTIVITAMINS [Concomitant]
  6. MINERALS [Concomitant]
  7. B5 [Concomitant]
  8. CALCIUM D3 [Concomitant]
  9. MAGNESIUM [Concomitant]

REACTIONS (2)
  - Blood iron decreased [None]
  - Iron deficiency anaemia [None]
